FAERS Safety Report 8227641-8 (Version None)
Quarter: 2012Q1

REPORT INFORMATION
  Report Type: 
  Country: None (occurrence: None)
  Receive Date: 20120322
  Receipt Date: 20120312
  Transmission Date: 20120608
  Serious: Yes (Hospitalization, Other)
  Sender: FDA-Public Use
  Company Number: AT-NAPPMUNDI-DEU-2012-0008765

PATIENT
  Age: 62 Year
  Sex: Female

DRUGS (18)
  1. FENTANYL [Concomitant]
     Indication: PRODUCT USED FOR UNKNOWN INDICATION
     Dosage: 150 MCG, SEE TEXT
     Route: 062
     Dates: start: 20100901
  2. ALPRAZOLAM [Suspect]
     Indication: PRODUCT USED FOR UNKNOWN INDICATION
     Dosage: 05 MG, UNK
     Route: 065
  3. DIAZEPAM [Suspect]
     Indication: PRODUCT USED FOR UNKNOWN INDICATION
     Dosage: 5 MG, BID
     Route: 065
  4. NITROGLYCERIN [Concomitant]
     Indication: PRODUCT USED FOR UNKNOWN INDICATION
     Dosage: UNK UNK, DAILY
     Route: 062
  5. METAMIZOL                          /06276702/ [Concomitant]
     Indication: PRODUCT USED FOR UNKNOWN INDICATION
     Dosage: 4 G, UNK
     Route: 065
  6. ANASTROZOLE [Concomitant]
     Indication: HORMONE THERAPY
     Dosage: UNK UNK, DAILY
     Route: 065
  7. HYDROMORPHONE HCL [Suspect]
     Route: 048
  8. HYDROMORPHONE HCL [Suspect]
     Indication: CANCER PAIN
     Dosage: 20 MG, TWICE
     Route: 048
  9. ACETYLSALICYLIC ACID SRT [Concomitant]
     Indication: PRODUCT USED FOR UNKNOWN INDICATION
     Dosage: 100 MG, UNK
     Route: 065
  10. METOPROLOL SUCCINATE [Concomitant]
     Indication: PRODUCT USED FOR UNKNOWN INDICATION
     Dosage: 47.5 MG, DAILY
     Route: 065
  11. GABAPENTIN [Suspect]
     Indication: CANCER PAIN
     Dosage: 900 MG, SEE TEXT
     Route: 065
     Dates: start: 20100901, end: 20100901
  12. FENTANYL [Concomitant]
     Dosage: 75 MCG, SEE TEXT
     Route: 062
     Dates: start: 20100901, end: 20100901
  13. HYDROMORPHONE HCL [Suspect]
     Indication: CANCER PAIN
     Dosage: 5.2 MG, UNK
     Route: 048
  14. AMITRIPTYLINE HCL [Suspect]
     Indication: PRODUCT USED FOR UNKNOWN INDICATION
     Dosage: 100 MG, UNK
     Route: 065
  15. LEVOTHYROXINE SODIUM [Concomitant]
     Indication: PRODUCT USED FOR UNKNOWN INDICATION
     Dosage: 150 MCG, UNK
     Route: 065
  16. FLUOXETINE HCL [Suspect]
     Indication: PRODUCT USED FOR UNKNOWN INDICATION
     Dosage: 40 MG, UNK
     Route: 065
  17. SIMVASTATIN [Concomitant]
     Indication: PRODUCT USED FOR UNKNOWN INDICATION
     Dosage: 40 MG, UNK
     Route: 065
  18. POLYETHYLENE GLYCOL [Concomitant]
     Indication: PRODUCT USED FOR UNKNOWN INDICATION
     Dosage: UNK UNK, DAILY
     Route: 065

REACTIONS (1)
  - DELIRIUM [None]
